FAERS Safety Report 4869382-0 (Version None)
Quarter: 2005Q4

REPORT INFORMATION
  Report Type: 
  Country: None (occurrence: None)
  Receive Date: 20051230
  Receipt Date: 20050707
  Transmission Date: 20060501
  Serious: Yes (Disabling, Other)
  Sender: FDA-Public Use
  Company Number: US-MERCK-0507USA01281

PATIENT
  Age: 55 Year
  Sex: Female
  Weight: 120 kg

DRUGS (11)
  1. VIOXX [Suspect]
     Indication: INTERVERTEBRAL DISC PROTRUSION
     Route: 048
     Dates: start: 20000101, end: 20030101
  2. VIOXX [Suspect]
     Route: 048
     Dates: start: 20000101, end: 20030101
  3. VIOXX [Suspect]
     Indication: BACK PAIN
     Route: 048
     Dates: start: 20000101, end: 20030101
  4. VIOXX [Suspect]
     Route: 048
     Dates: start: 20000101, end: 20030101
  5. [THERAPY UNSPECIFIED] [Concomitant]
     Route: 065
  6. DYAZIDE [Concomitant]
     Route: 065
  7. IMITREX [Concomitant]
     Indication: MIGRAINE
     Route: 065
  8. SYNTHROID [Concomitant]
     Route: 065
  9. AMBIEN [Concomitant]
     Indication: SLEEP DISORDER THERAPY
     Route: 065
  10. CARISOPRODOL [Concomitant]
     Indication: MUSCLE RELAXANT THERAPY
     Route: 065
  11. NORCO [Concomitant]
     Indication: PAIN
     Route: 065

REACTIONS (5)
  - ANXIETY [None]
  - BACK INJURY [None]
  - BREAST DISORDER [None]
  - CEREBROVASCULAR ACCIDENT [None]
  - INJURY [None]
